FAERS Safety Report 8924302 (Version 2)
Quarter: 2012Q4

REPORT INFORMATION
  Report Type: 
  Country: TW (occurrence: TW)
  Receive Date: 20121126
  Receipt Date: 20121204
  Transmission Date: 20130627
  Serious: Yes (Hospitalization)
  Sender: FDA-Public Use
  Company Number: TW-TEVA-370436ISR

PATIENT
  Age: 34 Year
  Sex: Female

DRUGS (6)
  1. FLUOROURACIL [Suspect]
     Indication: COLON CANCER METASTATIC
     Dosage: 400 mg/m2 bolus d1
     Route: 040
     Dates: start: 20091023
  2. FLUOROURACIL [Suspect]
     Indication: COLON CANCER METASTATIC
     Dosage: 2400 mg/m2 46h infusion
     Route: 041
     Dates: start: 20091023
  3. ERBITUX [Suspect]
     Indication: COLON CANCER METASTATIC
     Dosage: 400 mg/m2 loading dose
     Route: 065
     Dates: start: 20091023
  4. ERBITUX [Suspect]
     Indication: COLON CANCER METASTATIC
     Dosage: 250 mg/m2 weekly
     Route: 065
     Dates: start: 20091023
  5. IRINOTECAN [Suspect]
     Indication: COLON CANCER METASTATIC
     Dosage: 180 mg/m2 for 90 min d1
     Route: 041
     Dates: start: 20091023
  6. FOLINIC ACID [Suspect]
     Indication: COLON CANCER METASTATIC
     Dosage: 200 mg/m2
     Route: 065
     Dates: start: 20091023

REACTIONS (2)
  - Dysphonia [Recovered/Resolved]
  - Laryngeal injury [Recovered/Resolved]
